FAERS Safety Report 7179468-6 (Version None)
Quarter: 2010Q4

REPORT INFORMATION
  Report Type: 
  Country: None (occurrence: None)
  Receive Date: 20101208
  Receipt Date: 20101109
  Transmission Date: 20110411
  Serious: Yes (Hospitalization)
  Sender: FDA-Public Use
  Company Number: C-10-0264-W

PATIENT
  Age: 75 Year
  Sex: Female

DRUGS (1)
  1. CEFTRIAXONE [Suspect]
     Indication: PNEUMONIA
     Dosage: SINGLE DOSE, IM
     Route: 030
     Dates: start: 20101001

REACTIONS (3)
  - DIZZINESS [None]
  - PRURITUS [None]
  - SYNCOPE [None]
